FAERS Safety Report 7798476-5 (Version None)
Quarter: 2011Q4

REPORT INFORMATION
  Report Type: 
  Country: None (occurrence: None)
  Receive Date: 20111005
  Receipt Date: 20110926
  Transmission Date: 20120403
  Serious: Yes (Hospitalization, Other)
  Sender: FDA-Public Use
  Company Number: US-ASTRAZENECA-2008UW17553

PATIENT
  Age: 70 Year
  Sex: Female
  Weight: 67.1 kg

DRUGS (5)
  1. BENACORT [Concomitant]
  2. ARIMIDEX [Suspect]
     Indication: BREAST CANCER STAGE II
     Route: 048
     Dates: start: 20080201
  3. FOSAMAX [Concomitant]
  4. LIPITOR [Concomitant]
  5. VITAMIN D [Concomitant]

REACTIONS (9)
  - WEIGHT INCREASED [None]
  - CARDIAC TAMPONADE [None]
  - BUNION [None]
  - CATARACT [None]
  - MYOCARDIAL INFARCTION [None]
  - HOT FLUSH [None]
  - FATIGUE [None]
  - VISUAL ACUITY REDUCED [None]
  - ARTHRALGIA [None]
